FAERS Safety Report 26030476 (Version 1)
Quarter: 2025Q4

REPORT INFORMATION
  Report Type: Spontaneous
  Country: US (occurrence: US)
  Receive Date: 20251112
  Receipt Date: 20251112
  Transmission Date: 20260117
  Serious: No
  Sender: GALDERMA
  Company Number: US-GALDERMA-US2025021547

PATIENT

DRUGS (2)
  1. NEMLUVIO [Suspect]
     Active Substance: NEMOLIZUMAB-ILTO
     Indication: Product used for unknown indication
     Dosage: 60 MILLIGRAM
     Route: 058
     Dates: start: 20251021, end: 20251021
  2. INSULIN NOS [Concomitant]
     Active Substance: INSULIN NOS
     Indication: Type 1 diabetes mellitus
     Dosage: UNK

REACTIONS (7)
  - Skin lesion [Unknown]
  - Skin haemorrhage [Unknown]
  - Skin burning sensation [Unknown]
  - Blister [Unknown]
  - Diarrhoea [Unknown]
  - Rash erythematous [Unknown]
  - Feeding disorder [Unknown]

NARRATIVE: CASE EVENT DATE: 20251001
